FAERS Safety Report 9496260 (Version 1)
Quarter: 2013Q3

REPORT INFORMATION
  Report Type: Spontaneous
  Country: US (occurrence: US)
  Receive Date: 20130904
  Receipt Date: 20130904
  Transmission Date: 20140515
  Serious: Yes (Hospitalization)
  Sender: FDA-Public Use
  Company Number: US-RANBAXY-2013US-72715

PATIENT
  Age: 16 Year
  Sex: Female

DRUGS (2)
  1. RISPERIDONE [Suspect]
     Indication: MOOD ALTERED
     Route: 065
  2. RISPERIDONE [Suspect]
     Indication: IMPULSIVE BEHAVIOUR

REACTIONS (2)
  - Psychotic disorder [Recovered/Resolved]
  - Depression [Recovering/Resolving]
